FAERS Safety Report 25855576 (Version 2)
Quarter: 2025Q4

REPORT INFORMATION
  Report Type: Report from Study
  Country: KR (occurrence: KR)
  Receive Date: 20250927
  Receipt Date: 20251021
  Transmission Date: 20260117
  Serious: Yes (Hospitalization, Other)
  Sender: AMGEN
  Company Number: KR-AMGEN-KORNI2025137151

PATIENT
  Age: 64 Year
  Sex: Male

DRUGS (11)
  1. TARLATAMAB [Suspect]
     Active Substance: TARLATAMAB
     Indication: Small cell lung cancer
     Dosage: 10 MILLIGRAM (CYCLE 1)
     Route: 040
     Dates: start: 20250513, end: 2025
  2. TARLATAMAB [Suspect]
     Active Substance: TARLATAMAB
     Dosage: 10 MILLIGRAM (CYCLE 2)
     Route: 040
     Dates: start: 2025, end: 20250629
  3. LANSOPRAZOLE [Concomitant]
     Active Substance: LANSOPRAZOLE
  4. TRAMADOL [Concomitant]
     Active Substance: TRAMADOL
  5. CHOLECALCIFEROL [Concomitant]
     Active Substance: CHOLECALCIFEROL
  6. CALCIUM CARBONATE [Concomitant]
     Active Substance: CALCIUM CARBONATE
  7. DIMETHICONE\PANCRELIPASE\URSODIOL [Concomitant]
     Active Substance: DIMETHICONE\PANCRELIPASE\URSODIOL
  8. ERDOSTEINE [Concomitant]
     Active Substance: ERDOSTEINE
  9. MEGESTROL ACETATE [Concomitant]
     Active Substance: MEGESTROL ACETATE
  10. MOSAPRIDE [Concomitant]
     Active Substance: MOSAPRIDE
  11. TRIMEBUTINE [Concomitant]
     Active Substance: TRIMEBUTINE

REACTIONS (2)
  - Cytokine release syndrome [Recovered/Resolved]
  - Small cell lung cancer [Unknown]

NARRATIVE: CASE EVENT DATE: 20250101
